FAERS Safety Report 19677943 (Version 1)
Quarter: 2021Q3

REPORT INFORMATION
  Report Type: Spontaneous
  Country: IT (occurrence: IT)
  Receive Date: 20210810
  Receipt Date: 20210810
  Transmission Date: 20211014
  Serious: Yes (Other)
  Sender: FDA-Public Use
  Company Number: IT-AUROBINDO-AUR-APL-2021-030435

PATIENT
  Age: 76 Year
  Sex: Male

DRUGS (5)
  1. PREDNISONE. [Concomitant]
     Active Substance: PREDNISONE
     Indication: ORGANISING PNEUMONIA
     Dosage: 37.5 MILLIGRAM, ONCE A DAY
     Route: 065
     Dates: start: 2020
  2. BISOPROLOL FILM?COATED TABLETS [Suspect]
     Active Substance: BISOPROLOL
     Indication: ARRHYTHMIA
     Dosage: 1.25 MILLIGRAM, ONCE A DAY(LOW DOSES)
     Route: 048
     Dates: start: 20200428, end: 20200618
  3. TAMSULOSIN [Concomitant]
     Active Substance: TAMSULOSIN
     Indication: BENIGN PROSTATIC HYPERPLASIA
     Dosage: UNK
     Route: 065
  4. DUTASTERIDE. [Concomitant]
     Active Substance: DUTASTERIDE
     Indication: BENIGN PROSTATIC HYPERPLASIA
     Dosage: UNK
     Route: 065
  5. RIFAXIMIN. [Concomitant]
     Active Substance: RIFAXIMIN
     Indication: DIVERTICULUM
     Dosage: UNK UNK, CYCLICAL
     Route: 065

REACTIONS (2)
  - Cardiotoxicity [Recovered/Resolved]
  - Sinus bradycardia [Recovered/Resolved]

NARRATIVE: CASE EVENT DATE: 20200618
